FAERS Safety Report 10803561 (Version 1)
Quarter: 2015Q1

REPORT INFORMATION
  Report Type: Spontaneous
  Country: US (occurrence: US)
  Receive Date: 20150217
  Receipt Date: 20150217
  Transmission Date: 20150721
  Serious: No
  Sender: FDA-Public Use
  Company Number: US-GLAXOSMITHKLINE-US2015GSK020884

PATIENT
  Sex: Female

DRUGS (5)
  1. CAPECITABINE. [Concomitant]
     Active Substance: CAPECITABINE
  2. MELOXICAM. [Concomitant]
     Active Substance: MELOXICAM
  3. GABAPENTIN. [Concomitant]
     Active Substance: GABAPENTIN
  4. TYKERB [Suspect]
     Active Substance: LAPATINIB DITOSYLATE
     Indication: BREAST CANCER
     Dosage: 1250 MG, QD
     Route: 048
     Dates: start: 20141003
  5. SYNTHROID [Concomitant]
     Active Substance: LEVOTHYROXINE SODIUM

REACTIONS (1)
  - Abdominal distension [Unknown]
